FAERS Safety Report 6832937-8 (Version None)
Quarter: 2010Q3

REPORT INFORMATION
  Report Type: 
  Country: None (occurrence: None)
  Receive Date: 20100712
  Receipt Date: 20070319
  Transmission Date: 20110219
  Serious: No
  Sender: FDA-Public Use
  Company Number: US-PFIZER INC-2007022086

PATIENT
  Sex: Female
  Weight: 90.72 kg

DRUGS (12)
  1. CHANTIX [Suspect]
     Indication: SMOKING CESSATION THERAPY
     Route: 048
     Dates: start: 20070307
  2. REGLAN [Concomitant]
  3. ALL OTHER THERAPEUTIC PRODUCTS [Concomitant]
  4. SKELAXIN [Concomitant]
  5. ACIPHEX [Concomitant]
  6. XANAX [Concomitant]
  7. VERAPAMIL [Concomitant]
  8. LIPITOR [Concomitant]
  9. DETROL [Concomitant]
  10. GLYBURIDE [Concomitant]
  11. POTASSIUM [Concomitant]
  12. LORTAB [Concomitant]

REACTIONS (1)
  - NAUSEA [None]
